FAERS Safety Report 12855960 (Version 2)
Quarter: 2016Q4

REPORT INFORMATION
  Report Type: Spontaneous
  Country: JP (occurrence: JP)
  Receive Date: 20161018
  Receipt Date: 20161108
  Transmission Date: 20170207
  Serious: Yes (Life-Threatening, Hospitalization, Other)
  Sender: FDA-Public Use
  Company Number: JP-UCBSA-2016039404

PATIENT
  Age: 71 Year
  Sex: Male
  Weight: 40 kg

DRUGS (10)
  1. E KEPPRA [Suspect]
     Active Substance: LEVETIRACETAM
     Dosage: 1500 MG, 2X/DAY (BID)
     Route: 048
     Dates: start: 20151106, end: 20160114
  2. AMITIZA [Suspect]
     Active Substance: LUBIPROSTONE
     Indication: PRODUCT USED FOR UNKNOWN INDICATION
     Dosage: 24 ?G, ONCE DAILY (QD)
     Route: 048
     Dates: start: 20151218, end: 20160102
  3. CELESTAMINE [Suspect]
     Active Substance: BETAMETHASONE\DEXCHLORPHENIRAMINE MALEATE
     Indication: PRODUCT USED FOR UNKNOWN INDICATION
     Dosage: 2 DF, 2X/DAY (BID)
     Route: 048
     Dates: start: 20151231, end: 20160102
  4. TEGRETOL [Suspect]
     Active Substance: CARBAMAZEPINE
     Indication: EPILEPSY
     Dosage: 200 MG, 2X/DAY (BID)
     Route: 048
     Dates: start: 20151110, end: 20160114
  5. E KEPPRA [Suspect]
     Active Substance: LEVETIRACETAM
     Dosage: 1000 MG, 2X/DAY (BID)
     Route: 048
     Dates: start: 20151027, end: 20151106
  6. BAYASPIRIN [Concomitant]
     Active Substance: ASPIRIN
     Indication: CEREBRAL INFARCTION
     Dosage: 100 MG, ONCE DAILY (QD)
     Route: 048
     Dates: start: 20151014, end: 20160116
  7. E KEPPRA [Suspect]
     Active Substance: LEVETIRACETAM
     Indication: EPILEPSY
     Dosage: 500 MG, 2X/DAY (BID)
     Route: 048
     Dates: start: 20151013, end: 20151027
  8. URSO [Suspect]
     Active Substance: URSODIOL
     Indication: PRODUCT USED FOR UNKNOWN INDICATION
     Dosage: 100 MG, 3X/DAY (TID)
     Route: 048
     Dates: start: 20151218, end: 20151230
  9. URSO [Suspect]
     Active Substance: URSODIOL
     Dosage: 200 MG, 3X/DAY (TID)
     Dates: start: 20151230, end: 20160102
  10. TAKEPRON [Concomitant]
     Active Substance: LANSOPRAZOLE
     Indication: CEREBRAL INFARCTION
     Dosage: 15 MG, ONCE DAILY (QD)
     Route: 048
     Dates: end: 20160116

REACTIONS (9)
  - Drug reaction with eosinophilia and systemic symptoms [Unknown]
  - Rash [Recovered/Resolved]
  - Drug eruption [Unknown]
  - Rash generalised [Unknown]
  - Erythema [Recovered/Resolved]
  - Drug-induced liver injury [Unknown]
  - Lip oedema [Unknown]
  - Pyrexia [Unknown]
  - Pruritus [Recovered/Resolved]

NARRATIVE: CASE EVENT DATE: 20151220
